FAERS Safety Report 26038974 (Version 2)
Quarter: 2025Q4

REPORT INFORMATION
  Report Type: Spontaneous
  Country: US (occurrence: US)
  Receive Date: 20251113
  Receipt Date: 20251118
  Transmission Date: 20260118
  Serious: No
  Sender: ROCHE
  Company Number: US-ROCHE-10000430365

PATIENT
  Sex: Female

DRUGS (7)
  1. XOLAIR PFS [Suspect]
     Active Substance: OMALIZUMAB
     Indication: Asthma
     Dosage: STRENGTH: 15O MG/ML
     Route: 058
     Dates: start: 201808
  2. XOLAIR PFS [Suspect]
     Active Substance: OMALIZUMAB
  3. trikafta 100/50/75/150mg [Concomitant]
  4. diphenhydramine (allergy) [Concomitant]
  5. acetaminophen XS [Concomitant]
  6. EPINEPHRINE [Concomitant]
     Active Substance: EPINEPHRINE
  7. CUVITRU [Concomitant]
     Active Substance: HUMAN IMMUNOGLOBULIN G

REACTIONS (2)
  - Wrong technique in device usage process [Unknown]
  - Infusion site swelling [Unknown]
